FAERS Safety Report 9523255 (Version 2)
Quarter: 2014Q1

REPORT INFORMATION
  Report Type: Spontaneous
  Country: US (occurrence: None)
  Receive Date: 20130305
  Receipt Date: 20140306
  Transmission Date: 20141002
  Serious: Yes (Hospitalization)
  Sender: FDA-Public Use
  Company Number: 163-21880-12072372

PATIENT
  Age: 59 Year
  Sex: Female
  Weight: 169.9 kg

DRUGS (11)
  1. REVLIMID (LENALIDOMIDE) [Suspect]
     Indication: PLASMA CELL MYELOMA
     Dosage: 10 MG. 21 IN 21 D, ORAL
     Route: 048
     Dates: start: 20120501, end: 201207
  2. LISINOPRIL (LISINOPRIL) [Concomitant]
  3. ASA (ACETYLSALICYLIC AICD) [Concomitant]
  4. ZERTEC (CETIRIZINE HYDROCHLORIDE) [Concomitant]
  5. ADVAIR DISKUS [Concomitant]
  6. LASIX (FUROSEMIDE) [Concomitant]
  7. GABAPENTIN (GABAPENTIN) [Concomitant]
  8. METOPROLOL TARTRATE (METOPROLOL TARTRATE) (TABLETS) (METOPROLOL TARTRATE) [Concomitant]
  9. DIAZEPAM (DIAZEPAM) [Concomitant]
  10. ACYCLOVIR (ACICLOVIR) (ACICLOVIR) [Concomitant]
  11. OXYCODONE (OXYCODONE) [Concomitant]

REACTIONS (4)
  - Lung infection [None]
  - Plasma cell myeloma [None]
  - Drug ineffective [None]
  - Plasma cell myeloma [None]
